FAERS Safety Report 24862763 (Version 1)
Quarter: 2025Q1

REPORT INFORMATION
  Report Type: Report from Study
  Country: CA (occurrence: CA)
  Receive Date: 20250120
  Receipt Date: 20250120
  Transmission Date: 20250409
  Serious: Yes (Death, Other)
  Sender: VERITY PHARMACEUTICALS INC.
  Company Number: CA-VER-202500006

PATIENT
  Age: 87 Year
  Sex: Male

DRUGS (5)
  1. TRELSTAR [Suspect]
     Active Substance: TRIPTORELIN PAMOATE
     Indication: Prostate cancer
     Dosage: POWDER FOR PROLONGED-RELEASE SUSPENSION FOR INJECTION
     Route: 030
     Dates: start: 20211220, end: 20211220
  2. TRELSTAR [Suspect]
     Active Substance: TRIPTORELIN PAMOATE
     Indication: Prostate cancer
     Dosage: START DATE: 02-JUL-2024??POWDER FOR PROLONGED-RELEASE SUSPENSION FOR INJECTION
     Route: 030
     Dates: end: 20240702
  3. TRELSTAR [Suspect]
     Active Substance: TRIPTORELIN PAMOATE
     Indication: Prostate cancer
     Dosage: START DATE: 10-JAN-2023??POWDER FOR PROLONGED-RELEASE SUSPENSION FOR INJECTION
     Route: 030
     Dates: end: 20230110
  4. TRELSTAR [Suspect]
     Active Substance: TRIPTORELIN PAMOATE
     Indication: Prostate cancer
     Dosage: START DATE: 28-DEC-2023??POWDER FOR PROLONGED-RELEASE SUSPENSION FOR INJECTION
     Route: 030
     Dates: end: 20231228
  5. TRELSTAR [Suspect]
     Active Substance: TRIPTORELIN PAMOATE
     Indication: Prostate cancer
     Dosage: START DATE: 29-JUN-2023??POWDER FOR PROLONGED-RELEASE SUSPENSION FOR INJECTION
     Route: 030
     Dates: end: 20230629

REACTIONS (4)
  - Heart rate abnormal [Unknown]
  - Blood pressure diastolic decreased [Unknown]
  - Death [Fatal]
  - Inappropriate schedule of product administration [Recovered/Resolved]

NARRATIVE: CASE EVENT DATE: 20211220
